FAERS Safety Report 13000816 (Version 1)
Quarter: 2016Q4

REPORT INFORMATION
  Report Type: Spontaneous
  Country: US (occurrence: US)
  Receive Date: 20161206
  Receipt Date: 20161206
  Transmission Date: 20170207
  Serious: Yes (Other)
  Sender: FDA-Public Use
  Company Number: US-ROCHE-1862777

PATIENT
  Sex: Male

DRUGS (1)
  1. KLONOPIN [Suspect]
     Active Substance: CLONAZEPAM
     Indication: PRODUCT USED FOR UNKNOWN INDICATION
     Dosage: ONGOING;UNKNOWN
     Route: 065
     Dates: start: 2007

REACTIONS (4)
  - Drug dependence [Unknown]
  - Anger [Unknown]
  - Feeling abnormal [Unknown]
  - Judgement impaired [Unknown]
